FAERS Safety Report 19280382 (Version 1)
Quarter: 2021Q2

REPORT INFORMATION
  Report Type: Spontaneous
  Country: RO (occurrence: RO)
  Receive Date: 20210520
  Receipt Date: 20210520
  Transmission Date: 20210717
  Serious: Yes (Hospitalization, Other)
  Sender: FDA-Public Use
  Company Number: RO-AMGEN-ROUSP2021076200

PATIENT
  Age: 37 Year
  Sex: Female
  Weight: 48 kg

DRUGS (3)
  1. ADALIMUMAB [Suspect]
     Active Substance: ADALIMUMAB
     Indication: CROHN^S DISEASE
     Dosage: UNK
     Route: 065
     Dates: start: 201910, end: 202008
  2. MESALAZINE [Concomitant]
     Active Substance: MESALAMINE
     Dosage: 3 GRAM, QD
  3. AZATHIOPRINE. [Concomitant]
     Active Substance: AZATHIOPRINE
     Dosage: 100 MILLIGRAM, QD

REACTIONS (17)
  - Asthenia [Unknown]
  - Lymphopenia [Unknown]
  - Red blood cell sedimentation rate increased [Unknown]
  - Weight decreased [Unknown]
  - International normalised ratio increased [Unknown]
  - Dysphagia [Unknown]
  - Pulmonary tuberculosis [Recovering/Resolving]
  - Bacillus infection [Unknown]
  - Pharyngitis [Recovering/Resolving]
  - Enterobacter infection [Unknown]
  - Prothrombin level decreased [Unknown]
  - Salivary hypersecretion [Unknown]
  - Night sweats [Unknown]
  - Angina pectoris [Unknown]
  - Tonsillar hypertrophy [Unknown]
  - Hypoalbuminaemia [Unknown]
  - Hypochromic anaemia [Unknown]

NARRATIVE: CASE EVENT DATE: 2020
